FAERS Safety Report 6824436-4 (Version None)
Quarter: 2010Q3

REPORT INFORMATION
  Report Type: 
  Country: None (occurrence: None)
  Receive Date: 20100708
  Receipt Date: 20061030
  Transmission Date: 20110219
  Serious: No
  Sender: FDA-Public Use
  Company Number: US-PFIZER INC-2006132158

PATIENT
  Sex: Female
  Weight: 95.25 kg

DRUGS (5)
  1. CHANTIX [Suspect]
     Indication: SMOKING CESSATION THERAPY
     Dates: start: 20061001
  2. ASPIRIN [Concomitant]
     Dosage: DAILY
  3. ALTACE [Concomitant]
  4. VITAMIN D [Concomitant]
     Dosage: MONTHLY
  5. FIORICET [Concomitant]

REACTIONS (3)
  - DYSPEPSIA [None]
  - INSOMNIA [None]
  - NAUSEA [None]
